FAERS Safety Report 5649278-7 (Version None)
Quarter: 2008Q1

REPORT INFORMATION
  Report Type: 
  Country: None (occurrence: None)
  Receive Date: 20080304
  Receipt Date: 20071202
  Transmission Date: 20080703
  Serious: No
  Sender: FDA-Public Use
  Company Number: US-BAYER-200810043NA

PATIENT
  Age: 16 Month
  Sex: Male
  Weight: 11 kg

DRUGS (4)
  1. ULTRAVIST (PHARMACY BULK) [Suspect]
     Indication: COMPUTERISED TOMOGRAM
     Dosage: TOTAL DAILY DOSE: 19 ML  UNIT DOSE: 19 ML
     Route: 042
     Dates: start: 20071003, end: 20071003
  2. VANCOMYCIN [Concomitant]
  3. ROCEPHIN [Concomitant]
  4. TYLENOL (CAPLET) [Concomitant]

REACTIONS (1)
  - SWELLING FACE [None]
